FAERS Safety Report 23662444 (Version 2)
Quarter: 2024Q4

REPORT INFORMATION
  Report Type: Report from Study
  Country: CA (occurrence: CA)
  Receive Date: 20240322
  Receipt Date: 20241112
  Transmission Date: 20250114
  Serious: Yes (Death, Hospitalization)
  Sender: GENMAB
  Company Number: CA-ABBVIE-5671151

PATIENT
  Age: 77 Year
  Sex: Male

DRUGS (2)
  1. EPCORITAMAB [Suspect]
     Active Substance: EPCORITAMAB
     Indication: Diffuse large B-cell lymphoma
     Dosage: 48 MG/0.8ML VIAL, CYCLE 1:48 MG (DAY 15 AND 22)
     Route: 058
     Dates: start: 20240209
  2. CISPLATIN;DEXAMETHASONE;GEMCITABINE;RITUXIMAB [Concomitant]
     Indication: Product used for unknown indication
     Dosage: UNK

REACTIONS (4)
  - Death [Fatal]
  - Hospitalisation [Unknown]
  - Somnolence [Not Recovered/Not Resolved]
  - Neurological symptom [Unknown]

NARRATIVE: CASE EVENT DATE: 20240101
